FAERS Safety Report 23815839 (Version 3)
Quarter: 2024Q2

REPORT INFORMATION
  Report Type: Report from Study
  Country: JP (occurrence: JP)
  Receive Date: 20240503
  Receipt Date: 20240603
  Transmission Date: 20240715
  Serious: Yes (Death)
  Sender: FDA-Public Use
  Company Number: JP-shionogi-202403415_FTR_P_1

PATIENT

DRUGS (9)
  1. FETROJA [Suspect]
     Active Substance: CEFIDEROCOL SULFATE TOSYLATE
     Indication: Bacterial infection
     Dosage: 2 G, TID
     Route: 041
     Dates: start: 20240418, end: 20240426
  2. FETROJA [Suspect]
     Active Substance: CEFIDEROCOL SULFATE TOSYLATE
     Dosage: 1.5 G, TID
     Route: 041
     Dates: start: 20240426, end: 20240427
  3. AZACTAM [Concomitant]
     Active Substance: AZTREONAM
     Indication: Bacterial infection
     Dosage: UNK
     Route: 065
     Dates: start: 20240421, end: 20240427
  4. AMIKACIN SULFATE [Concomitant]
     Active Substance: AMIKACIN SULFATE
     Indication: Bacterial infection
     Dosage: UNK
     Route: 065
     Dates: start: 20240419, end: 20240426
  5. METHYLPREDNISOLONE SODIUM SUCCINATE [Concomitant]
     Active Substance: METHYLPREDNISOLONE SODIUM SUCCINATE
     Dosage: UNK
     Route: 065
     Dates: start: 20240425, end: 20240427
  6. TYGACIL [Concomitant]
     Active Substance: TIGECYCLINE
     Indication: Bacterial infection
     Dosage: 100 MG, QD
     Route: 065
     Dates: start: 20240416, end: 20240416
  7. TYGACIL [Concomitant]
     Active Substance: TIGECYCLINE
     Dosage: 50 MG, BID
     Route: 065
     Dates: start: 20240417, end: 20240418
  8. TYGACIL [Concomitant]
     Active Substance: TIGECYCLINE
     Dosage: UNK
     Route: 065
     Dates: start: 20240426, end: 20240427
  9. THROMBOMODULIN ALFA [Concomitant]
     Active Substance: THROMBOMODULIN ALFA
     Dosage: UNK
     Route: 065
     Dates: start: 20240426, end: 20240427

REACTIONS (2)
  - Bacterial infection [Fatal]
  - Drug resistance [Unknown]

NARRATIVE: CASE EVENT DATE: 20240427
